FAERS Safety Report 21643869 (Version 6)
Quarter: 2024Q4

REPORT INFORMATION
  Report Type: Report from Study
  Country: KR (occurrence: KR)
  Receive Date: 20221125
  Receipt Date: 20241221
  Transmission Date: 20250115
  Serious: Yes (Other)
  Sender: NOVARTIS
  Company Number: KR-002147023-NVSC2022KR265098

PATIENT
  Sex: Male
  Weight: 63.1 kg

DRUGS (11)
  1. RYDAPT [Suspect]
     Active Substance: MIDOSTAURIN
     Indication: Acute myeloid leukaemia
     Dosage: 50 MG, BID
     Route: 048
     Dates: start: 20220427, end: 20220510
  2. RYDAPT [Suspect]
     Active Substance: MIDOSTAURIN
     Dosage: 50 MG, BID
     Route: 048
     Dates: start: 20220611, end: 20220624
  3. TEICOPLANIN [Concomitant]
     Active Substance: TEICOPLANIN
     Indication: Febrile neutropenia
     Dosage: 400 MG, QD
     Route: 042
     Dates: start: 20220420, end: 20220808
  4. MEROPENEM [Concomitant]
     Active Substance: MEROPENEM
     Indication: Febrile neutropenia
     Dosage: 3 G
     Route: 042
     Dates: start: 20220420
  5. MEROPENEM [Concomitant]
     Active Substance: MEROPENEM
     Dosage: 1000 MG, TID
     Route: 065
     Dates: end: 20220808
  6. SPIRODACTON [Concomitant]
     Indication: Oedema
     Dosage: 50 MG
     Route: 048
     Dates: start: 20220422, end: 20220501
  7. DAUNORUBICIN [Concomitant]
     Active Substance: DAUNORUBICIN
     Indication: Acute myeloid leukaemia
     Dosage: 103.8 MG
     Route: 042
     Dates: start: 20220416, end: 20220418
  8. CYTARABINE [Concomitant]
     Active Substance: CYTARABINE
     Indication: Acute myeloid leukaemia
     Dosage: 173 MG
     Route: 042
     Dates: start: 20220416, end: 20220422
  9. CYTARABINE [Concomitant]
     Active Substance: CYTARABINE
     Dosage: 6560 MG
     Route: 042
     Dates: start: 20220604, end: 20220604
  10. CYTARABINE [Concomitant]
     Active Substance: CYTARABINE
     Dosage: 6560 MG
     Route: 042
     Dates: start: 20220606, end: 20220606
  11. CYTARABINE [Concomitant]
     Active Substance: CYTARABINE
     Dosage: 6560 MG
     Route: 042
     Dates: start: 20220608, end: 20220608

REACTIONS (1)
  - Enterococcal infection [Recovered/Resolved]

NARRATIVE: CASE EVENT DATE: 20220504
